FAERS Safety Report 20838038 (Version 1)
Quarter: 2022Q2

REPORT INFORMATION
  Report Type: Report from Study
  Country: US (occurrence: US)
  Receive Date: 20220517
  Receipt Date: 20220517
  Transmission Date: 20220721
  Serious: No
  Sender: FDA-Public Use
  Company Number: US-BRISTOL-MYERS SQUIBB COMPANY-2022-033895

PATIENT
  Age: 40 Year
  Sex: Male

DRUGS (1)
  1. ZEPOSIA [Suspect]
     Active Substance: OZANIMOD HYDROCHLORIDE
     Indication: Colitis ulcerative
     Dosage: DOSE: 0.23-0.92
     Route: 048
     Dates: start: 20220201, end: 20220205

REACTIONS (2)
  - Upper respiratory tract infection [Unknown]
  - T-lymphocyte count decreased [Unknown]

NARRATIVE: CASE EVENT DATE: 20220427
